FAERS Safety Report 9622162 (Version 1)
Quarter: 2013Q4

REPORT INFORMATION
  Report Type: Spontaneous
  Country: US (occurrence: US)
  Receive Date: 20131015
  Receipt Date: 20131015
  Transmission Date: 20140711
  Serious: No
  Sender: FDA-Public Use
  Company Number: US-PURDUE-USA-2012-0085669

PATIENT
  Sex: Female

DRUGS (1)
  1. BUTRANS [Suspect]
     Indication: PAIN
     Dosage: ONE 5MCG PATCH, THEN TWO 5MCG PATCHES, THEN ONE 5MCG PATCH,
     Route: 062

REACTIONS (3)
  - Extra dose administered [Unknown]
  - Breakthrough pain [Unknown]
  - Malaise [Unknown]
